FAERS Safety Report 6607890-2 (Version None)
Quarter: 2010Q1

REPORT INFORMATION
  Report Type: 
  Country: None (occurrence: None)
  Receive Date: 20100225
  Receipt Date: 20100225
  Transmission Date: 20100710
  Serious: No
  Sender: FDA-Public Use
  Company Number: None

PATIENT
  Age: 66 Year
  Sex: Female
  Weight: 74.8435 kg

DRUGS (1)
  1. PILOCARPINE [Suspect]

REACTIONS (5)
  - EYE SWELLING [None]
  - PARAESTHESIA [None]
  - PRURITUS [None]
  - SINUS DISORDER [None]
  - SWELLING [None]
